FAERS Safety Report 8935472 (Version 1)
Quarter: 2012Q4

REPORT INFORMATION
  Report Type: Spontaneous
  Country: US (occurrence: None)
  Receive Date: 20121128
  Receipt Date: 20121128
  Transmission Date: 20130627
  Serious: Yes (Hospitalization)
  Sender: FDA-Public Use
  Company Number: None

PATIENT
  Age: 76 Year
  Sex: Male
  Weight: 76.6 kg

DRUGS (3)
  1. TEGRETOL [Suspect]
     Indication: HEADACHE
     Dosage: chronic
     Route: 048
  2. MVI [Concomitant]
  3. METOPROLOL TARTRATE [Concomitant]

REACTIONS (5)
  - Small intestinal obstruction [None]
  - Inguinal hernia, obstructive [None]
  - Deep vein thrombosis [None]
  - Pulmonary embolism [None]
  - Drug level increased [None]
